FAERS Safety Report 8118306-1 (Version None)
Quarter: 2012Q1

REPORT INFORMATION
  Report Type: 
  Country: None (occurrence: None)
  Receive Date: 20120207
  Receipt Date: 20120202
  Transmission Date: 20120608
  Serious: Yes (Other)
  Sender: FDA-Public Use
  Company Number: US-PFIZER INC-2012030244

PATIENT
  Sex: Male
  Weight: 77.098 kg

DRUGS (4)
  1. CHANTIX [Suspect]
     Indication: SMOKING CESSATION THERAPY
     Dosage: 0.5 MG, DAILY
     Dates: start: 20120126
  2. HUMIRA [Concomitant]
     Dosage: UNK
  3. AMBIEN [Suspect]
     Dosage: 10 MG, UNK
  4. ONDANSETRON HCL [Suspect]
     Indication: NAUSEA
     Dosage: UNK

REACTIONS (6)
  - FEELING JITTERY [None]
  - VOMITING [None]
  - DYSARTHRIA [None]
  - DRUG INEFFECTIVE [None]
  - HYPOAESTHESIA [None]
  - DISORIENTATION [None]
